FAERS Safety Report 5611317-7 (Version None)
Quarter: 2008Q1

REPORT INFORMATION
  Report Type: 
  Country: None (occurrence: None)
  Receive Date: 20080201
  Receipt Date: 20080118
  Transmission Date: 20080703
  Serious: Yes (Death)
  Sender: FDA-Public Use
  Company Number: JP-ROCHE-538039

PATIENT
  Age: 58 Year
  Sex: Female

DRUGS (1)
  1. XELODA [Suspect]
     Indication: BREAST CANCER METASTATIC
     Dosage: DRUG REPORTED AS: XELODA 300, DOSAGE REGIMEN: 3 WEEKS ADMINISTRATION FOLLOWED BY 1 WEEK REST
     Route: 048
     Dates: start: 20070302, end: 20071207

REACTIONS (2)
  - BREAST CANCER METASTATIC [None]
  - HEPATIC FUNCTION ABNORMAL [None]
